FAERS Safety Report 6461967-3 (Version None)
Quarter: 2009Q4

REPORT INFORMATION
  Report Type: 
  Country: None (occurrence: None)
  Receive Date: 20091130
  Receipt Date: 20091120
  Transmission Date: 20100525
  Serious: Yes (Hospitalization)
  Sender: FDA-Public Use
  Company Number: IT-BRISTOL-MYERS SQUIBB COMPANY-12939872

PATIENT
  Age: 83 Year
  Sex: Female
  Weight: 68 kg

DRUGS (4)
  1. IRBESARTAN [Suspect]
     Indication: HYPERTENSION
     Dates: start: 20040722, end: 20050101
  2. CLOPIDOGREL BISULFATE [Suspect]
     Indication: PROPHYLAXIS
     Dosage: INTERRUPTED D/T EVENT; RESTARTED ON 19-MAR-2005
     Dates: start: 20040622
  3. ASPIRIN [Suspect]
     Indication: PROPHYLAXIS
     Dosage: INTERRUPTED D/T EVENT; RESTARTED ON 19-MAR-2005
     Dates: start: 20040622
  4. FUROSEMIDE [Concomitant]

REACTIONS (3)
  - FACIAL BONES FRACTURE [None]
  - HYPOTENSION [None]
  - PRESYNCOPE [None]
